FAERS Safety Report 17260189 (Version 1)
Quarter: 2020Q1

REPORT INFORMATION
  Report Type: Spontaneous
  Country: GB (occurrence: GB)
  Receive Date: 20200111
  Receipt Date: 20200111
  Transmission Date: 20200409
  Serious: Yes (Disabling, Other)
  Sender: FDA-Public Use
  Company Number: NVSC2020GB004479

PATIENT
  Age: 52 Year
  Sex: Female
  Weight: 92 kg

DRUGS (3)
  1. LEVOFLOXACIN. [Suspect]
     Active Substance: LEVOFLOXACIN
     Indication: INFECTIVE EXACERBATION OF BRONCHIECTASIS
     Dosage: 1000 MG, QD
     Route: 048
     Dates: start: 20191001
  2. CIPROFLOXACIN. [Concomitant]
     Active Substance: CIPROFLOXACIN
     Indication: INFECTIVE EXACERBATION OF BRONCHIECTASIS
     Dosage: UNK (N/A)
     Route: 065
  3. PREDNISOLONE. [Concomitant]
     Active Substance: PREDNISOLONE
     Indication: EYE INFLAMMATION
     Dosage: UNK (N/A)
     Route: 065

REACTIONS (10)
  - Feeling of body temperature change [Unknown]
  - Fatigue [Unknown]
  - Pain in extremity [Unknown]
  - Tendonitis [Not Recovered/Not Resolved]
  - Paraesthesia [Unknown]
  - Discomfort [Unknown]
  - Arthralgia [Unknown]
  - Dizziness [Unknown]
  - Musculoskeletal pain [Unknown]
  - Foot deformity [Unknown]

NARRATIVE: CASE EVENT DATE: 20191004
